FAERS Safety Report 19478684 (Version 1)
Quarter: 2021Q2

REPORT INFORMATION
  Report Type: Report from Study
  Country: NO (occurrence: NO)
  Receive Date: 20210630
  Receipt Date: 20210630
  Transmission Date: 20210717
  Serious: Yes (Hospitalization)
  Sender: FDA-Public Use
  Company Number: NO-ROCHE-2183198

PATIENT
  Age: 69 Year
  Sex: Male

DRUGS (28)
  1. AFIPRAN [Concomitant]
     Active Substance: METOCLOPRAMIDE HYDROCHLORIDE
     Route: 042
     Dates: start: 20180108, end: 20180108
  2. ENALAPRIL [Concomitant]
     Active Substance: ENALAPRIL
     Route: 048
     Dates: start: 20180312
  3. ZANIDIP [Concomitant]
     Active Substance: LERCANIDIPINE HYDROCHLORIDE
     Route: 048
     Dates: start: 20180312
  4. PLAVIX [Concomitant]
     Active Substance: CLOPIDOGREL BISULFATE
     Route: 048
     Dates: start: 20180108, end: 20180108
  5. HEPARIN [Concomitant]
     Active Substance: HEPARIN SODIUM
     Dosage: DOSE 5000 IE
     Route: 042
     Dates: start: 20180108, end: 20180108
  6. HEPARIN [Concomitant]
     Active Substance: HEPARIN SODIUM
     Dosage: DOSE 5000 IE
     Route: 065
     Dates: start: 20180108, end: 20180108
  7. ISOPTIN [Concomitant]
     Active Substance: VERAPAMIL HYDROCHLORIDE
     Route: 065
     Dates: start: 20180108, end: 20180108
  8. REOPRO [Concomitant]
     Active Substance: ABCIXIMAB
     Route: 042
     Dates: start: 20180108, end: 20180108
  9. LIPITOR [Concomitant]
     Active Substance: ATORVASTATIN CALCIUM
     Route: 048
     Dates: start: 20180108, end: 20180511
  10. EFIENT [Concomitant]
     Active Substance: PRASUGREL HYDROCHLORIDE
     Route: 048
     Dates: start: 20180109
  11. METOPROLOL TARTRATE. [Concomitant]
     Active Substance: METOPROLOL TARTRATE
     Route: 048
     Dates: start: 20180109, end: 20180111
  12. KLEXANE [Concomitant]
     Active Substance: ENOXAPARIN
     Route: 058
     Dates: start: 20180203, end: 20180203
  13. ENALAPRIL [Concomitant]
     Active Substance: ENALAPRIL
     Route: 048
     Dates: start: 20180111, end: 20180115
  14. ACETYLSALISYLSYRE [Concomitant]
     Route: 048
     Dates: start: 20180108, end: 20180108
  15. ENALAPRIL [Concomitant]
     Active Substance: ENALAPRIL
     Route: 048
     Dates: start: 20180115, end: 20180219
  16. LIPITOR [Concomitant]
     Active Substance: ATORVASTATIN CALCIUM
     Route: 048
     Dates: start: 20180511
  17. ENOXAPARIN [Concomitant]
     Active Substance: ENOXAPARIN
     Route: 058
     Dates: start: 20180203, end: 20180205
  18. TOCILIZUMAB. [Suspect]
     Active Substance: TOCILIZUMAB
     Indication: MYOCARDIAL INFARCTION
     Route: 042
     Dates: start: 20180108
  19. REOPRO [Concomitant]
     Active Substance: ABCIXIMAB
     Route: 042
     Dates: start: 20180108, end: 20180109
  20. METOPROLOL TARTRATE. [Concomitant]
     Active Substance: METOPROLOL TARTRATE
     Route: 048
     Dates: start: 20180111
  21. METOPROLOL. [Concomitant]
     Active Substance: METOPROLOL
  22. PANTOPRAZOL [Concomitant]
     Active Substance: PANTOPRAZOLE SODIUM
  23. ACETYLSALISYLSYRE [Concomitant]
     Route: 048
     Dates: start: 20180109
  24. NITROGLYCERIN. [Concomitant]
     Active Substance: NITROGLYCERIN
     Route: 060
     Dates: start: 20180108, end: 20180108
  25. SOMAC [Concomitant]
     Active Substance: PANTOPRAZOLE SODIUM
     Route: 048
     Dates: start: 20180111
  26. KLEXANE [Concomitant]
     Active Substance: ENOXAPARIN
     Route: 058
     Dates: start: 20180204, end: 20180205
  27. KLEXANE [Concomitant]
     Active Substance: ENOXAPARIN
     Route: 058
     Dates: start: 20180205, end: 20180205
  28. RAMIPRIL. [Concomitant]
     Active Substance: RAMIPRIL

REACTIONS (1)
  - Chest pain [Recovered/Resolved]

NARRATIVE: CASE EVENT DATE: 20180203
